FAERS Safety Report 20448269 (Version 12)
Quarter: 2025Q1

REPORT INFORMATION
  Report Type: Report from Study
  Country: DE (occurrence: DE)
  Receive Date: 20220209
  Receipt Date: 20250211
  Transmission Date: 20250408
  Serious: No
  Sender: ROCHE
  Company Number: DE-ROCHE-2658828

PATIENT
  Age: 38 Year
  Sex: Female

DRUGS (5)
  1. OCREVUS [Suspect]
     Active Substance: OCRELIZUMAB
     Indication: Relapsing-remitting multiple sclerosis
     Dosage: DOSE: 600MG, 184 DAYS?600 MG 182 DAYS?600 MG 189 DAYS
     Route: 042
     Dates: start: 20200807
  2. OCREVUS [Suspect]
     Active Substance: OCRELIZUMAB
     Route: 042
     Dates: start: 20210802
  3. CANDESARTAN [Concomitant]
     Active Substance: CANDESARTAN
  4. VITAMIN D3 [Concomitant]
     Active Substance: CHOLECALCIFEROL
  5. EFEROX [Concomitant]
     Active Substance: LEVOTHYROXINE SODIUM

REACTIONS (14)
  - Dizziness [Recovered/Resolved]
  - Fatigue [Recovered/Resolved]
  - Paraesthesia [Not Recovered/Not Resolved]
  - Headache [Recovered/Resolved]
  - Listless [Recovered/Resolved]
  - COVID-19 [Recovered/Resolved]
  - Cardiovascular disorder [Recovered/Resolved]
  - Rash pruritic [Recovered/Resolved]
  - Oropharyngeal pain [Recovered/Resolved]
  - Gastrointestinal viral infection [Recovered/Resolved]
  - Nausea [Recovered/Resolved]
  - Vomiting [Recovered/Resolved]
  - Diarrhoea [Recovered/Resolved]
  - Joint dislocation [Recovered/Resolved]

NARRATIVE: CASE EVENT DATE: 20200807
